FAERS Safety Report 7202374-5 (Version None)
Quarter: 2010Q4

REPORT INFORMATION
  Report Type: 
  Country: None (occurrence: None)
  Receive Date: 20101229
  Receipt Date: 20101222
  Transmission Date: 20110411
  Serious: No
  Sender: FDA-Public Use
  Company Number: US-PFIZER INC-2010178019

PATIENT
  Sex: Male
  Weight: 107.48 kg

DRUGS (8)
  1. CHANTIX [Suspect]
     Indication: SMOKING CESSATION THERAPY
     Dosage: 0.5 MG, 1X/DAY
     Route: 048
     Dates: start: 20101206
  2. CRESTOR [Concomitant]
     Indication: BLOOD CHOLESTEROL INCREASED
     Dosage: UNK
  3. SERTRALINE [Concomitant]
     Indication: MANIA
     Dosage: UNK
  4. SERTRALINE [Concomitant]
     Indication: BIPOLAR DISORDER
  5. SEROQUEL [Concomitant]
     Indication: MANIA
     Dosage: UNK
  6. SEROQUEL [Concomitant]
     Indication: BIPOLAR DISORDER
  7. METOPROLOL [Concomitant]
     Indication: CARDIAC DISORDER
     Dosage: UNK
  8. TRICOR [Concomitant]
     Indication: CARDIAC DISORDER
     Dosage: UNK

REACTIONS (3)
  - DECREASED APPETITE [None]
  - DYSGEUSIA [None]
  - MALAISE [None]
